FAERS Safety Report 18184432 (Version 3)
Quarter: 2020Q3

REPORT INFORMATION
  Report Type: Report from Study
  Country: US (occurrence: US)
  Receive Date: 20200824
  Receipt Date: 20200924
  Transmission Date: 20201103
  Serious: Yes (Other)
  Sender: FDA-Public Use
  Company Number: NVSC2020US232937

PATIENT
  Sex: Female

DRUGS (1)
  1. ENTRESTO [Suspect]
     Active Substance: SACUBITRIL\VALSARTAN
     Indication: PRODUCT USED FOR UNKNOWN INDICATION
     Dosage: 50 MG, BID, 24/26
     Route: 048
     Dates: start: 2017

REACTIONS (6)
  - Dizziness [Unknown]
  - Hypersomnia [Unknown]
  - Eating disorder [Unknown]
  - Feeling abnormal [Unknown]
  - Dementia [Unknown]
  - Hypotension [Unknown]
